FAERS Safety Report 13459730 (Version 1)
Quarter: 2017Q2

REPORT INFORMATION
  Report Type: Spontaneous
  Country: US (occurrence: US)
  Receive Date: 20170420
  Receipt Date: 20170420
  Transmission Date: 20170830
  Serious: Yes (Other)
  Sender: FDA-Public Use
  Company Number: US-JNJFOC-20151008461

PATIENT
  Sex: Male

DRUGS (2)
  1. RISPERDAL [Suspect]
     Active Substance: RISPERIDONE
     Indication: AFFECTIVE DISORDER
     Dosage: RISPERDAL WAS GIVEN IN THREE PHASES(1999-2000),23 AUGUST 2010 AND 18-OCT-2010 FOR 2 MG.
     Route: 048
     Dates: start: 1999, end: 20101018
  2. RISPERDAL [Suspect]
     Active Substance: RISPERIDONE
     Indication: BIPOLAR DISORDER
     Dosage: RISPERDAL WAS GIVEN IN THREE PHASES(1999-2000),23 AUGUST 2010 AND 18-OCT-2010 FOR 2 MG.
     Route: 048
     Dates: start: 1999, end: 20101018

REACTIONS (2)
  - Gynaecomastia [Unknown]
  - Abnormal weight gain [Unknown]

NARRATIVE: CASE EVENT DATE: 1999
